FAERS Safety Report 18643316 (Version 1)
Quarter: 2020Q4

REPORT INFORMATION
  Report Type: Spontaneous
  Country: US (occurrence: US)
  Receive Date: 20201221
  Receipt Date: 20201221
  Transmission Date: 20210114
  Serious: No
  Sender: FDA-Public Use
  Company Number: US-009507513-2012USA005602

PATIENT
  Age: 18 Year
  Sex: Male

DRUGS (1)
  1. NASONEX [Suspect]
     Active Substance: MOMETASONE FUROATE
     Indication: EOSINOPHILIC OESOPHAGITIS
     Dosage: 1 DOSAGE FORM (200 MICROGRAM), BID

REACTIONS (2)
  - Product use in unapproved indication [Unknown]
  - Incorrect route of product administration [Unknown]
